FAERS Safety Report 20026697 (Version 2)
Quarter: 2021Q4

REPORT INFORMATION
  Report Type: Spontaneous
  Country: CN (occurrence: CN)
  Receive Date: 20211102
  Receipt Date: 20211122
  Transmission Date: 20220303
  Serious: Yes (Other)
  Sender: FDA-Public Use
  Company Number: CN-009507513-2111CHN000042

PATIENT
  Age: 65 Year
  Sex: Female
  Weight: 84 kg

DRUGS (3)
  1. CILASTATIN SODIUM\IMIPENEM [Suspect]
     Active Substance: CILASTATIN SODIUM\IMIPENEM
     Indication: Infection
     Dosage: DOSE: 0.5 G, FREQUENCY: EVERY 8 HOURS (Q8H)
     Route: 041
     Dates: start: 20211017, end: 20211025
  2. SODIUM CHLORIDE [Suspect]
     Active Substance: SODIUM CHLORIDE
     Indication: Medication dilution
     Dosage: DOSE: 100 ML, FREQUENCY: 3 TIMES A DAY
     Route: 041
     Dates: start: 20211017, end: 20211025
  3. IRBESARTAN AND HYDROCHLOROTHIAZIDE [Suspect]
     Active Substance: HYDROCHLOROTHIAZIDE\IRBESARTAN
     Indication: Hypertension
     Dosage: DOSE: 1 TABLET, FREQUENCY: ONCE DAILY (QD)
     Route: 048
     Dates: start: 20211017, end: 20211025

REACTIONS (1)
  - Hypokalaemia [Recovering/Resolving]

NARRATIVE: CASE EVENT DATE: 20211019
